FAERS Safety Report 9467625 (Version 1)
Quarter: 2013Q3

REPORT INFORMATION
  Report Type: Spontaneous
  Country: US (occurrence: None)
  Receive Date: 20130819
  Receipt Date: 20130819
  Transmission Date: 20140515
  Serious: Yes (Disabling)
  Sender: FDA-Public Use
  Company Number: None

PATIENT
  Age: 74 Year
  Sex: Male
  Weight: 113.4 kg

DRUGS (2)
  1. TYLENOL [Suspect]
     Indication: SPINAL FRACTURE
     Dosage: 1000MG A DAY    TWICE DAILY  TAKEN BY MOUTH
     Route: 048
     Dates: start: 20001215, end: 20130816
  2. TYLENOL [Suspect]
     Indication: ARTHROPATHY
     Dosage: 1000MG A DAY    TWICE DAILY  TAKEN BY MOUTH
     Route: 048
     Dates: start: 20001215, end: 20130816

REACTIONS (2)
  - Erythema [None]
  - Blister [None]
